FAERS Safety Report 24540781 (Version 1)
Quarter: 2024Q4

REPORT INFORMATION
  Report Type: Spontaneous
  Country: US (occurrence: US)
  Receive Date: 20241023
  Receipt Date: 20241023
  Transmission Date: 20250115
  Serious: Yes (Other)
  Sender: AMGEN
  Company Number: US-AMGEN-USASP2024206002

PATIENT
  Age: 68 Year
  Sex: Female

DRUGS (3)
  1. PREDNISONE [Suspect]
     Active Substance: PREDNISONE
     Indication: Ophthalmic herpes zoster
     Dosage: UNK
     Route: 065
  2. PREDNISONE [Suspect]
     Active Substance: PREDNISONE
     Indication: Giant cell arteritis
  3. VALACYCLOVIR [Concomitant]
     Active Substance: VALACYCLOVIR HYDROCHLORIDE
     Indication: Ophthalmic herpes zoster
     Dosage: UNK
     Route: 048

REACTIONS (7)
  - IIIrd nerve paralysis [Recovering/Resolving]
  - Trigeminal palsy [Recovering/Resolving]
  - Facial paralysis [Recovering/Resolving]
  - VIth nerve paralysis [Recovering/Resolving]
  - Ophthalmic herpes zoster [Recovering/Resolving]
  - IVth nerve paralysis [Recovering/Resolving]
  - Off label use [Unknown]
